FAERS Safety Report 8435997-6 (Version None)
Quarter: 2012Q2

REPORT INFORMATION
  Report Type: 
  Country: None (occurrence: None)
  Receive Date: 20120608
  Receipt Date: 20120608
  Transmission Date: 20120825
  Serious: Yes (Other)
  Sender: FDA-Public Use
  Company Number: None

PATIENT
  Sex: Female
  Weight: 74.8435 kg

DRUGS (2)
  1. MEGACE [Suspect]
     Indication: APPETITE DISORDER
     Dosage: 400, 2X DAILY, PO
     Route: 048
     Dates: start: 20120527, end: 20120531
  2. MEGACE [Suspect]
     Indication: APPETITE DISORDER
     Dosage: 400, 2X DAILY, PO
     Route: 048
     Dates: start: 20120517, end: 20120520

REACTIONS (1)
  - DEEP VEIN THROMBOSIS [None]
